FAERS Safety Report 5470961-0 (Version None)
Quarter: 2007Q3

REPORT INFORMATION
  Report Type: 
  Country: None (occurrence: None)
  Receive Date: 20070928
  Receipt Date: 20070920
  Transmission Date: 20080115
  Serious: Yes (Hospitalization)
  Sender: FDA-Public Use
  Company Number: FR-BAYER-200710548BFR

PATIENT
  Age: 17 Year
  Sex: Male

DRUGS (10)
  1. CIFLOX [Suspect]
     Indication: UNEVALUABLE EVENT
     Dosage: TOTAL DAILY DOSE: 500 MG  UNIT DOSE: 250 MG
     Route: 048
     Dates: start: 20070606, end: 20070612
  2. EVOLTRA (CLAFORABINE) [Suspect]
     Indication: ACUTE LYMPHOCYTIC LEUKAEMIA RECURRENT
     Route: 042
     Dates: start: 20070608, end: 20070612
  3. AMIKLIN [Suspect]
     Indication: UNEVALUABLE EVENT
     Dates: start: 20070609, end: 20070614
  4. TRIFLUCAN [Suspect]
     Indication: UNEVALUABLE EVENT
     Route: 048
     Dates: start: 20070604
  5. ZELITREX [Suspect]
     Indication: UNEVALUABLE EVENT
     Route: 048
     Dates: start: 20070530
  6. FORTUM [Suspect]
     Indication: UNEVALUABLE EVENT
     Route: 042
     Dates: start: 20070603
  7. FORTUM [Suspect]
     Dates: start: 20070502, end: 20070517
  8. PLITICAN [Concomitant]
     Indication: UNEVALUABLE EVENT
     Dates: start: 20070504, end: 20070517
  9. PLITICAN [Concomitant]
     Dates: start: 20070610
  10. ACETAMINOPHEN [Concomitant]
     Indication: UNEVALUABLE EVENT
     Dates: start: 20070606

REACTIONS (5)
  - OEDEMA PERIPHERAL [None]
  - PAIN IN EXTREMITY [None]
  - PRURITUS [None]
  - RASH [None]
  - SKIN EXFOLIATION [None]
